FAERS Safety Report 9325196 (Version 1)
Quarter: 2013Q2

REPORT INFORMATION
  Report Type: Spontaneous
  Country: CA (occurrence: CA)
  Receive Date: 20130604
  Receipt Date: 20130604
  Transmission Date: 20140414
  Serious: Yes (Death)
  Sender: FDA-Public Use
  Company Number: CA-ROCHE-1231889

PATIENT
  Sex: Male
  Weight: 84 kg

DRUGS (8)
  1. AVASTIN [Suspect]
     Indication: COLORECTAL CANCER
     Route: 042
     Dates: start: 201209, end: 20130220
  2. COVERSYL [Concomitant]
     Route: 065
  3. ATORVASTATIN [Concomitant]
     Route: 065
  4. ACEBUTOLOL [Concomitant]
     Route: 065
  5. METFORMIN [Concomitant]
     Route: 065
  6. HYDROCHLOROTHIAZIDE [Concomitant]
     Route: 065
  7. STEMETIL [Concomitant]
     Route: 065
  8. ZOFRAN [Concomitant]
     Route: 065

REACTIONS (1)
  - Death [Fatal]
